FAERS Safety Report 6017370-3 (Version None)
Quarter: 2008Q4

REPORT INFORMATION
  Report Type: 
  Country: None (occurrence: None)
  Receive Date: 20081223
  Receipt Date: 20081215
  Transmission Date: 20090506
  Serious: Yes (Disabling)
  Sender: FDA-Public Use
  Company Number: IT-BAYER-200832957GPV

PATIENT
  Age: 75 Year
  Sex: Male

DRUGS (4)
  1. NEXAVAR [Suspect]
     Indication: DRUG USE FOR UNKNOWN INDICATION
     Dosage: TOTAL DAILY DOSE: 800 MG
     Route: 048
     Dates: start: 20081027, end: 20081106
  2. ESOPRAL [Concomitant]
     Indication: DRUG USE FOR UNKNOWN INDICATION
     Dosage: TOTAL DAILY DOSE: 20 MG
     Route: 048
  3. ZYLORIC [Concomitant]
     Indication: DRUG USE FOR UNKNOWN INDICATION
     Dosage: TOTAL DAILY DOSE: 300 MG
     Route: 048
  4. ACESISTEM [Concomitant]
     Indication: DRUG USE FOR UNKNOWN INDICATION
     Route: 048

REACTIONS (5)
  - DERMATITIS [None]
  - DISABILITY [None]
  - ERYTHEMA [None]
  - HYPERKERATOSIS [None]
  - SKIN FISSURES [None]
